FAERS Safety Report 6245125-3 (Version None)
Quarter: 2009Q2

REPORT INFORMATION
  Report Type: 
  Country: None (occurrence: None)
  Receive Date: 20090619
  Receipt Date: 20090330
  Transmission Date: 20091009
  Serious: No
  Sender: FDA-Public Use
  Company Number: ALL1-2009-00847

PATIENT
  Age: 38 Year
  Sex: Male
  Weight: 74.8 kg

DRUGS (2)
  1. VYVANSE [Suspect]
     Indication: ATTENTION DEFICIT/HYPERACTIVITY DISORDER
     Dosage: 30 MG, 1X/DAY:QD, ORAL
     Route: 048
     Dates: start: 20090301
  2. GRAPEFRUIT SEED EXTRACT() [Suspect]
     Indication: ROUTINE HEALTH MAINTENANCE
     Dosage: 10 DROPS, ONE DOSE, ORAL
     Route: 048
     Dates: start: 20090328, end: 20090329

REACTIONS (3)
  - DIZZINESS [None]
  - DRUG INTERACTION [None]
  - NAUSEA [None]
